FAERS Safety Report 7318281-3 (Version None)
Quarter: 2011Q1

REPORT INFORMATION
  Report Type: 
  Country: None (occurrence: None)
  Receive Date: 20110228
  Receipt Date: 20110216
  Transmission Date: 20110831
  Serious: No
  Sender: FDA-Public Use
  Company Number: US-BIOGENIDEC-2011BI006988

PATIENT
  Age: 58 Year
  Sex: Female

DRUGS (2)
  1. TYSABRI [Suspect]
     Indication: MULTIPLE SCLEROSIS
     Route: 042
     Dates: start: 20101222
  2. ZOCOR [Concomitant]
     Indication: BLOOD CHOLESTEROL

REACTIONS (4)
  - DEPRESSION [None]
  - PAIN [None]
  - MUSCLE SPASMS [None]
  - PAIN IN EXTREMITY [None]
